FAERS Safety Report 25435708 (Version 1)
Quarter: 2025Q2

REPORT INFORMATION
  Report Type: Spontaneous
  Country: US (occurrence: US)
  Receive Date: 20250613
  Receipt Date: 20250613
  Transmission Date: 20250717
  Serious: No
  Sender: MYLAN
  Company Number: US-MYLANLABS-2025M1047612

PATIENT
  Sex: Female

DRUGS (1)
  1. IMATINIB MESYLATE [Suspect]
     Active Substance: IMATINIB MESYLATE
     Indication: Gastrointestinal stromal tumour

REACTIONS (4)
  - Loss of personal independence in daily activities [Unknown]
  - Dry eye [Unknown]
  - Product substitution issue [Unknown]
  - Drug ineffective [Unknown]
